FAERS Safety Report 21114728 (Version 2)
Quarter: 2022Q3

REPORT INFORMATION
  Report Type: Spontaneous
  Country: US (occurrence: US)
  Receive Date: 20220721
  Receipt Date: 20220801
  Transmission Date: 20221027
  Serious: Yes (Hospitalization, Other)
  Sender: FDA-Public Use
  Company Number: US-PFIZER INC-202200982491

PATIENT
  Age: 68 Year
  Sex: Female
  Weight: 59.87 kg

DRUGS (3)
  1. PRISTIQ EXTENDED-RELEASE [Suspect]
     Active Substance: DESVENLAFAXINE SUCCINATE
     Dosage: 75 MG, 1X/DAY (THREE 25MG/FULL 75MG AT NIGHT)
  2. SYNTHROID [Concomitant]
     Active Substance: LEVOTHYROXINE SODIUM
     Indication: Thyroid disorder
     Dosage: UNK
  3. WELLBUTRIN [Concomitant]
     Active Substance: BUPROPION HYDROCHLORIDE
     Dosage: 300 MG, 1X/DAY (IN THE MORNING)

REACTIONS (3)
  - Diverticulitis [Unknown]
  - Product dose omission issue [Unknown]
  - Head discomfort [Unknown]

NARRATIVE: CASE EVENT DATE: 20211101
